FAERS Safety Report 8419205-8 (Version None)
Quarter: 2012Q2

REPORT INFORMATION
  Report Type: 
  Country: None (occurrence: None)
  Receive Date: 20120607
  Receipt Date: 20120522
  Transmission Date: 20120825
  Serious: No
  Sender: FDA-Public Use
  Company Number: US-BAYER-2012-052768

PATIENT
  Age: 54 Year
  Sex: Male
  Weight: 84.354 kg

DRUGS (3)
  1. ALEVE (CAPLET) [Suspect]
     Dosage: 2 DF, PRN
     Route: 048
     Dates: start: 19970101
  2. NAPROXEN (ALEVE) [Suspect]
     Indication: ANALGESIC THERAPY
     Dosage: 2 DF, QD
     Route: 048
     Dates: start: 19970101
  3. ASPIRIN [Concomitant]
     Indication: ANALGESIC THERAPY
     Dosage: 2 DF, PRN

REACTIONS (2)
  - MOBILITY DECREASED [None]
  - MUSCULOSKELETAL STIFFNESS [None]
